FAERS Safety Report 7373129-6 (Version None)
Quarter: 2011Q1

REPORT INFORMATION
  Report Type: 
  Country: None (occurrence: None)
  Receive Date: 20110316
  Receipt Date: 20110303
  Transmission Date: 20110831
  Serious: Yes (Other)
  Sender: FDA-Public Use
  Company Number: ABR_00025_2011

PATIENT
  Age: 50 Year

DRUGS (3)
  1. HEMOPRESSIN [Suspect]
     Indication: THERAPEUTIC PROCEDURE
     Dosage: DF
  2. CIPROFLOXACIN [Suspect]
  3. ERYTHROMYCIN [Suspect]
     Indication: ENDOSCOPY
     Dosage: DF

REACTIONS (5)
  - MELAENA [None]
  - OESOPHAGEAL VARICES HAEMORRHAGE [None]
  - HAEMATEMESIS [None]
  - ATRIAL FIBRILLATION [None]
  - TORSADE DE POINTES [None]
